FAERS Safety Report 4755132-5 (Version None)
Quarter: 2005Q3

REPORT INFORMATION
  Report Type: 
  Country: None (occurrence: None)
  Receive Date: 20050829
  Receipt Date: 20050812
  Transmission Date: 20060218
  Serious: Yes (Hospitalization, Other)
  Sender: FDA-Public Use
  Company Number: 200512350JP

PATIENT
  Age: 50 Year
  Sex: Male

DRUGS (2)
  1. RILUTEK [Suspect]
     Route: 048
     Dates: start: 20050524
  2. UNKNOWN DRUG [Concomitant]

REACTIONS (1)
  - INTERSTITIAL LUNG DISEASE [None]
